FAERS Safety Report 5870953-3 (Version None)
Quarter: 2008Q3

REPORT INFORMATION
  Report Type: 
  Country: None (occurrence: None)
  Receive Date: 20080904
  Receipt Date: 20080827
  Transmission Date: 20090109
  Serious: Yes (Hospitalization, Other)
  Sender: FDA-Public Use
  Company Number: US-ABBOTT-08P-163-0460251-00

PATIENT
  Sex: Female
  Weight: 62.198 kg

DRUGS (9)
  1. LUPRON DEPOT [Suspect]
     Indication: ENDOMETRIOSIS
     Route: 030
     Dates: start: 20070601, end: 20071101
  2. LUPRON DEPOT [Suspect]
     Route: 030
     Dates: start: 20080528, end: 20080825
  3. ALPRAZOLAM [Concomitant]
     Indication: PANIC DISORDER
     Route: 048
  4. ALPRAZOLAM [Concomitant]
     Indication: ANXIETY
  5. AXOTAL [Concomitant]
     Indication: BACK PAIN
     Route: 048
  6. AXOTAL [Concomitant]
     Indication: SCOLIOSIS
  7. PROPRANOLOL [Concomitant]
     Indication: TACHYCARDIA
     Route: 048
  8. LIBRAX [Concomitant]
     Indication: IRRITABLE BOWEL SYNDROME
     Route: 048
  9. VITAMIN TAB [Concomitant]
     Indication: DRUG USE FOR UNKNOWN INDICATION
     Route: 048

REACTIONS (9)
  - COAGULOPATHY [None]
  - ENDOMETRIOSIS [None]
  - HAEMATOMA [None]
  - INJECTION SITE HAEMORRHAGE [None]
  - INJECTION SITE NODULE [None]
  - INJECTION SITE PAIN [None]
  - INJECTION SITE SWELLING [None]
  - MUSCULAR WEAKNESS [None]
  - PAIN IN EXTREMITY [None]
